FAERS Safety Report 21637010 (Version 14)
Quarter: 2025Q1

REPORT INFORMATION
  Report Type: Report from Study
  Country: DE (occurrence: DE)
  Receive Date: 20221124
  Receipt Date: 20250116
  Transmission Date: 20250409
  Serious: Yes (Hospitalization, Other)
  Sender: ROCHE
  Company Number: DE-ROCHE-2838041

PATIENT
  Age: 46 Year
  Sex: Female
  Weight: 80 kg

DRUGS (13)
  1. OCREVUS [Suspect]
     Active Substance: OCRELIZUMAB
     Indication: Primary progressive multiple sclerosis
     Dosage: FIRST INITIAL DOSE: 600 MG IN 312 DAYS?600 MG 203 DAYS
     Route: 042
     Dates: start: 20200514
  2. OCREVUS [Suspect]
     Active Substance: OCRELIZUMAB
     Route: 042
     Dates: start: 20210520
  3. OCREVUS [Suspect]
     Active Substance: OCRELIZUMAB
     Route: 042
  4. PRAMIPEXOLE [Concomitant]
     Active Substance: PRAMIPEXOLE
  5. DYDROGESTERONE\ESTRADIOL [Concomitant]
     Active Substance: DYDROGESTERONE\ESTRADIOL
  6. PREDNISOLONE [Concomitant]
     Active Substance: PREDNISOLONE
  7. CITALOPRAM [Concomitant]
     Active Substance: CITALOPRAM
     Dosage: 1-0-0
  8. MAGNESIUM [Concomitant]
     Active Substance: MAGNESIUM
  9. TAVOR (LORAZEPAM) [Concomitant]
     Active Substance: LORAZEPAM
  10. MELATONIN [Concomitant]
     Active Substance: MELATONIN
  11. PREGABALIN [Concomitant]
     Active Substance: PREGABALIN
  12. OMEPRAZOLE [Concomitant]
     Active Substance: OMEPRAZOLE
     Dosage: AL SLOW-RELEASE 20 MG
  13. CORTISONE [Concomitant]
     Active Substance: CORTISONE
     Route: 042

REACTIONS (57)
  - Fatigue [Not Recovered/Not Resolved]
  - Alopecia [Recovered/Resolved]
  - Fall [Unknown]
  - Tendon injury [Recovered/Resolved]
  - Bruxism [Not Recovered/Not Resolved]
  - Night sweats [Not Recovered/Not Resolved]
  - Menopause [Unknown]
  - Cyst [Recovered/Resolved]
  - Fluid retention [Recovered/Resolved]
  - Cervical spinal stenosis [Recovered/Resolved]
  - Restless legs syndrome [Recovered/Resolved]
  - Disorientation [Not Recovered/Not Resolved]
  - Weight increased [Not Recovered/Not Resolved]
  - Insomnia [Not Recovered/Not Resolved]
  - Agitation [Recovered/Resolved]
  - Mood swings [Recovered/Resolved]
  - Middle insomnia [Not Recovered/Not Resolved]
  - Intervertebral disc protrusion [Not Recovered/Not Resolved]
  - Facial paralysis [Recovered/Resolved]
  - Hypoaesthesia [Not Recovered/Not Resolved]
  - Atonic urinary bladder [Not Recovered/Not Resolved]
  - Pneumonia [Recovered/Resolved]
  - Dyspnoea [Recovered/Resolved]
  - Ileus [Recovered/Resolved]
  - Gastrointestinal mucosal disorder [Not Recovered/Not Resolved]
  - Gastrooesophageal reflux disease [Recovering/Resolving]
  - Fractured coccyx [Not Recovered/Not Resolved]
  - Fracture pain [Recovered/Resolved]
  - Urinary tract infection [Recovered/Resolved]
  - Renal pain [Recovered/Resolved]
  - Loss of consciousness [Recovered/Resolved]
  - Joint dislocation [Recovered/Resolved]
  - Large intestine polyp [Recovered/Resolved]
  - Joint dislocation [Not Recovered/Not Resolved]
  - Multiple sclerosis [Not Recovered/Not Resolved]
  - Meniscus injury [Recovered/Resolved]
  - Gingivitis [Recovered/Resolved]
  - Hemiplegia [Recovered/Resolved]
  - Paraesthesia [Recovering/Resolving]
  - Tobacco withdrawal symptoms [Recovered/Resolved]
  - Constipation [Recovering/Resolving]
  - Severe acute respiratory syndrome [Recovered/Resolved]
  - Progressive multifocal leukoencephalopathy [Recovered/Resolved]
  - Aphthous ulcer [Not Recovered/Not Resolved]
  - Influenza like illness [Recovered/Resolved]
  - Wrist fracture [Recovered/Resolved]
  - Gastrointestinal infection [Recovered/Resolved]
  - Hand fracture [Recovered/Resolved]
  - Pain in extremity [Recovering/Resolving]
  - Muscle spasticity [Recovering/Resolving]
  - Taste disorder [Not Recovered/Not Resolved]
  - Diarrhoea [Not Recovered/Not Resolved]
  - Abdominal distension [Not Recovered/Not Resolved]
  - Pulpitis dental [Recovering/Resolving]
  - Cholelithiasis [Not Recovered/Not Resolved]
  - Biliary dilatation [Not Recovered/Not Resolved]
  - Abdominal pain [Not Recovered/Not Resolved]

NARRATIVE: CASE EVENT DATE: 20200514
